FAERS Safety Report 9406052 (Version 1)
Quarter: 2013Q3

REPORT INFORMATION
  Report Type: Spontaneous
  Country: BE (occurrence: BE)
  Receive Date: 20130717
  Receipt Date: 20130717
  Transmission Date: 20140515
  Serious: Yes (Hospitalization)
  Sender: FDA-Public Use
  Company Number: BE-B.I. PHARMACEUTICALS,INC./RIDGEFIELD-2013-BL-00341BL

PATIENT
  Sex: Male

DRUGS (7)
  1. SIFROL [Suspect]
     Indication: RESTLESS LEGS SYNDROME
  2. SIFROL [Suspect]
  3. METHADONE [Concomitant]
     Dosage: 7 MG
  4. LORAZEPAM [Concomitant]
     Dosage: 2 MG
  5. TRITACE [Concomitant]
     Dosage: 5 MG
  6. OMEPRAZOLE [Concomitant]
     Dosage: 20 MG
  7. DIAZEPAM [Concomitant]
     Dosage: 20 MG

REACTIONS (5)
  - Syncope [Unknown]
  - Fall [Unknown]
  - Head injury [Unknown]
  - Bradycardia [Unknown]
  - Somnolence [Unknown]
